FAERS Safety Report 8424609-3 (Version None)
Quarter: 2012Q2

REPORT INFORMATION
  Report Type: 
  Country: None (occurrence: None)
  Receive Date: 20120611
  Receipt Date: 20120605
  Transmission Date: 20120825
  Serious: Yes (Hospitalization)
  Sender: FDA-Public Use
  Company Number: US-AMGEN-USASP2012035137

PATIENT
  Age: 66 Year
  Sex: Female

DRUGS (2)
  1. HYDROXYCHLOROQUINE SULFATE [Concomitant]
     Dosage: 1 MG, UNK
     Dates: start: 20090601
  2. ENBREL [Suspect]
     Indication: RHEUMATOID ARTHRITIS
     Dosage: 50 MG, QWK
     Dates: start: 20090601

REACTIONS (13)
  - PRURITUS [None]
  - BLOOD SODIUM DECREASED [None]
  - LOSS OF CONSCIOUSNESS [None]
  - PAIN [None]
  - HEART RATE IRREGULAR [None]
  - FATIGUE [None]
  - BLOOD POTASSIUM DECREASED [None]
  - WEIGHT INCREASED [None]
  - RHEUMATOID ARTHRITIS [None]
  - RENAL IMPAIRMENT [None]
  - DIZZINESS [None]
  - VOMITING [None]
  - MACULAR FIBROSIS [None]
